FAERS Safety Report 19053817 (Version 1)
Quarter: 2021Q1

REPORT INFORMATION
  Report Type: Report from Study
  Country: None (occurrence: US)
  Receive Date: 20210325
  Receipt Date: 20210325
  Transmission Date: 20210420
  Serious: Yes (Hospitalization)
  Sender: FDA-Public Use
  Company Number: US-ABBVIE-21K-163-3828573-00

PATIENT
  Sex: Male

DRUGS (1)
  1. IMBRUVICA [Suspect]
     Active Substance: IBRUTINIB
     Indication: NON-HODGKIN^S LYMPHOMA
     Route: 048
     Dates: start: 202102, end: 2021

REACTIONS (3)
  - Blood electrolytes decreased [Recovered/Resolved]
  - Malaise [Recovered/Resolved]
  - Blood potassium increased [Recovered/Resolved]

NARRATIVE: CASE EVENT DATE: 2021
